FAERS Safety Report 11803358 (Version 1)
Quarter: 2015Q4

REPORT INFORMATION
  Report Type: Spontaneous
  Country: US (occurrence: US)
  Receive Date: 20151204
  Receipt Date: 20151204
  Transmission Date: 20160305
  Serious: No
  Sender: FDA-Public Use
  Company Number: US-GUERBET LLC-1045077

PATIENT
  Age: 50 Year
  Sex: Female

DRUGS (3)
  1. OXILAN [Suspect]
     Active Substance: IOXILAN
     Route: 042
     Dates: start: 20080924, end: 20080924
  2. MIDAZOLAM [Concomitant]
     Active Substance: MIDAZOLAM\MIDAZOLAM HYDROCHLORIDE
     Dates: start: 20080924
  3. FENTANYL. [Concomitant]
     Active Substance: FENTANYL
     Dates: start: 20080924

REACTIONS (1)
  - Pruritus [None]

NARRATIVE: CASE EVENT DATE: 20080924
